FAERS Safety Report 25575093 (Version 1)
Quarter: 2025Q3

REPORT INFORMATION
  Report Type: Spontaneous
  Country: AU (occurrence: AU)
  Receive Date: 20250718
  Receipt Date: 20250718
  Transmission Date: 20251020
  Serious: Yes (Hospitalization, Other)
  Sender: ABBVIE
  Company Number: AU-ABBVIE-6373149

PATIENT
  Age: 17 Year
  Sex: Female

DRUGS (1)
  1. RINVOQ [Suspect]
     Active Substance: UPADACITINIB
     Indication: Crohn^s disease
     Route: 048
     Dates: start: 202506

REACTIONS (5)
  - Neurological symptom [Unknown]
  - Blood sodium decreased [Unknown]
  - Disorientation [Unknown]
  - Muscular weakness [Unknown]
  - Encephalitis [Unknown]

NARRATIVE: CASE EVENT DATE: 20250101
